FAERS Safety Report 8495213-6 (Version None)
Quarter: 2012Q2

REPORT INFORMATION
  Report Type: 
  Country: None (occurrence: None)
  Receive Date: 20120405
  Receipt Date: 20100320
  Transmission Date: 20120825
  Serious: Yes (Other)
  Sender: FDA-Public Use
  Company Number: PHHY2010US18374

PATIENT
  Age: 59 Year
  Sex: Male

DRUGS (1)
  1. RECLAST [Suspect]
     Indication: OSTEOPENIA
     Dosage: INTRAVENOUS
     Route: 042

REACTIONS (5)
  - ASTHENIA [None]
  - PAIN [None]
  - MUSCULOSKELETAL STIFFNESS [None]
  - PYREXIA [None]
  - BEDRIDDEN [None]
